FAERS Safety Report 24883706 (Version 1)
Quarter: 2025Q1

REPORT INFORMATION
  Report Type: Spontaneous
  Country: CN (occurrence: CN)
  Receive Date: 20250124
  Receipt Date: 20250124
  Transmission Date: 20250409
  Serious: Yes (Other)
  Sender: EISAI
  Company Number: CN-Eisai-EC-2025-182642

PATIENT
  Age: 54 Year
  Sex: Male

DRUGS (2)
  1. ERIBULIN [Suspect]
     Active Substance: ERIBULIN
     Indication: Soft tissue sarcoma
     Route: 042
     Dates: start: 20241226
  2. LENVATINIB [Concomitant]
     Active Substance: LENVATINIB
     Indication: Soft tissue sarcoma
     Route: 048
     Dates: start: 20241226, end: 20250102

REACTIONS (1)
  - Myelosuppression [Recovering/Resolving]

NARRATIVE: CASE EVENT DATE: 20241228
